FAERS Safety Report 23224278 (Version 1)
Quarter: 2023Q4

REPORT INFORMATION
  Report Type: Report from Study
  Country: US (occurrence: None)
  Receive Date: 20231124
  Receipt Date: 20231124
  Transmission Date: 20240110
  Serious: Yes (Other)
  Sender: FDA-Public Use
  Company Number: 2023A262953

PATIENT
  Sex: Female

DRUGS (1)
  1. TAGRISSO [Suspect]
     Active Substance: OSIMERTINIB
     Route: 048

REACTIONS (10)
  - Near drowning [Unknown]
  - Lung neoplasm malignant [Unknown]
  - Decreased appetite [Unknown]
  - Nausea [Unknown]
  - Fluid retention [Unknown]
  - Gastric dilatation [Unknown]
  - Visual impairment [Unknown]
  - Vision blurred [Unknown]
  - Chest discomfort [Unknown]
  - Respiratory rate decreased [Unknown]
